FAERS Safety Report 12704274 (Version 4)
Quarter: 2016Q4

REPORT INFORMATION
  Report Type: Report from Study
  Country: None (occurrence: CH)
  Receive Date: 20160831
  Receipt Date: 20161110
  Transmission Date: 20170207
  Serious: Yes (Hospitalization)
  Sender: FDA-Public Use
  Company Number: CH-ABBVIE-16K-151-1713963-00

PATIENT
  Sex: Female

DRUGS (1)
  1. DUODOPA [Suspect]
     Active Substance: CARBIDOPA\LEVODOPA
     Indication: PARKINSON^S DISEASE
     Dosage: MD: 7.0ML, CD DAY: 2.8ML/H, CD NIGHT: 2,1ML/HEXTRA DOSE: 1.5ML?24H THERAPY
     Route: 050
     Dates: start: 20160610

REACTIONS (7)
  - Abnormal behaviour [Unknown]
  - Somnolence [Unknown]
  - General physical health deterioration [Not Recovered/Not Resolved]
  - Nutritional condition abnormal [Unknown]
  - Fall [Unknown]
  - Asthenia [Unknown]
  - Freezing phenomenon [Not Recovered/Not Resolved]

NARRATIVE: CASE EVENT DATE: 2016
